FAERS Safety Report 8336606-7 (Version None)
Quarter: 2012Q2

REPORT INFORMATION
  Report Type: 
  Country: None (occurrence: None)
  Receive Date: 20120504
  Receipt Date: 20120427
  Transmission Date: 20120825
  Serious: Yes (Hospitalization)
  Sender: FDA-Public Use
  Company Number: US-PFIZER INC-2012106278

PATIENT
  Age: 8 Year
  Sex: Male

DRUGS (14)
  1. ASPARAGINASE [Suspect]
     Indication: LYMPHOCYTIC LEUKAEMIA
     Dosage: UNK
     Dates: end: 20111225
  2. PREDNISONE TAB [Suspect]
     Indication: LYMPHOCYTIC LEUKAEMIA
     Dosage: 500MG TOTAL
     Route: 042
     Dates: start: 20100611
  3. SPRYCEL [Suspect]
     Indication: LYMPHOCYTIC LEUKAEMIA
     Dosage: 2025MG TOTAL
     Route: 048
     Dates: start: 20100611
  4. VINCRISTINE SULFATE [Suspect]
     Indication: LYMPHOCYTIC LEUKAEMIA
     Dosage: 3.6MG TOTAL
     Route: 042
     Dates: start: 20100611
  5. CYTARABINE [Suspect]
     Indication: LYMPHOCYTIC LEUKAEMIA
     Dosage: 48 MG TOTAL
     Route: 042
     Dates: start: 20110705
  6. CYCLOPHOSPHAMIDE [Suspect]
     Indication: LYMPHOCYTIC LEUKAEMIA
     Dosage: 1800MG TOTAL
     Route: 042
     Dates: start: 20100611
  7. DEXAMETHASONE SODIUM PHOSPHATE [Suspect]
     Indication: LYMPHOCYTIC LEUKAEMIA
     Dosage: UNK
     Route: 042
     Dates: start: 20100611
  8. MERCAPTOPURINE [Suspect]
     Indication: LYMPHOCYTIC LEUKAEMIA
     Dosage: 1875MG TOTAL
     Route: 048
     Dates: start: 20100611
  9. METHOTREXATE SODIUM [Suspect]
     Indication: LYMPHOCYTIC LEUKAEMIA
     Dosage: 95.25 MILLIGRAM TOTAL
     Route: 042
     Dates: start: 20110705
  10. ETOPOSIDE [Suspect]
     Indication: LYMPHOCYTIC LEUKAEMIA
     Dosage: 600 MILLIGRAM TOTAL
     Route: 042
     Dates: start: 20100611
  11. IFOSFAMIDE [Suspect]
     Indication: LYMPHOCYTIC LEUKAEMIA
     Dosage: UNK
     Route: 042
     Dates: start: 20100611
  12. HYDROCORTISONE SODIUM SUCCINATE [Suspect]
     Indication: LYMPHOCYTIC LEUKAEMIA
     Dosage: 24 MG TOTAL
     Route: 042
     Dates: start: 20100611
  13. DAUNORUBICIN HCL [Suspect]
     Indication: LYMPHOCYTIC LEUKAEMIA
     Route: 042
  14. ELSPAR [Suspect]
     Indication: LYMPHOCYTIC LEUKAEMIA
     Dosage: UNK
     Route: 030
     Dates: start: 20100611

REACTIONS (1)
  - SEPSIS [None]
